FAERS Safety Report 25240645 (Version 4)
Quarter: 2025Q3

REPORT INFORMATION
  Report Type: Report from Study
  Country: EU (occurrence: EU)
  Receive Date: 20250425
  Receipt Date: 20250831
  Transmission Date: 20251020
  Serious: Yes (Life-Threatening, Hospitalization, Other)
  Sender: JOHNSON AND JOHNSON
  Company Number: EU-JNJFOC-20250427148

PATIENT
  Age: 42 Year
  Sex: Female
  Weight: 51.3 kg

DRUGS (2)
  1. TALQUETAMAB [Suspect]
     Active Substance: TALQUETAMAB
     Indication: Plasma cell myeloma refractory
     Route: 065
     Dates: end: 20240208
  2. TALQUETAMAB [Suspect]
     Active Substance: TALQUETAMAB
     Route: 065
     Dates: end: 20240208

REACTIONS (8)
  - Neutropenia [Recovered/Resolved]
  - Renal failure [Recovered/Resolved]
  - Bacteraemia [Recovered/Resolved with Sequelae]
  - Cytokine release syndrome [Recovered/Resolved]
  - Thrombocytopenia [Not Recovered/Not Resolved]
  - Headache [Not Recovered/Not Resolved]
  - Hypertransaminasaemia [Not Recovered/Not Resolved]
  - Hypercalcaemia [Recovered/Resolved]

NARRATIVE: CASE EVENT DATE: 20240118
